FAERS Safety Report 4301946-5 (Version None)
Quarter: 2004Q1

REPORT INFORMATION
  Report Type: 
  Country: None (occurrence: None)
  Receive Date: 20040220
  Receipt Date: 20040210
  Transmission Date: 20041129
  Serious: No
  Sender: FDA-Public Use
  Company Number: 2003AP02998

PATIENT
  Age: 62 Year
  Sex: Female

DRUGS (8)
  1. ARIMIDEX [Suspect]
     Indication: BREAST CANCER
     Dosage: 1 MG DAILY PO
     Route: 048
     Dates: start: 20021225, end: 20030305
  2. ARIMIDEX [Suspect]
     Indication: BREAST CANCER
     Dosage: 1 MG DAILY PO
     Route: 048
     Dates: start: 20030311
  3. TAXOL [Suspect]
     Indication: BREAST CANCER
     Dosage: 120 MG DAILY IV
     Route: 042
     Dates: start: 20021225, end: 20021225
  4. TAXOL [Suspect]
     Indication: BREAST CANCER
     Dosage: 90 MG DAILY IV
     Route: 042
     Dates: start: 20030106, end: 20030114
  5. TAXOL [Suspect]
     Indication: BREAST CANCER
     Dosage: 90 MG DAILY IV
     Route: 042
     Dates: start: 20030204, end: 20030204
  6. FURTULON [Suspect]
     Indication: BREAST CANCER
     Dosage: 800 MG DAILY IV
     Route: 042
     Dates: start: 20021225, end: 20030119
  7. FURTULON [Suspect]
     Indication: BREAST CANCER
     Dosage: 400 MG DAILY PO
     Route: 048
     Dates: start: 20030120
  8. ENDOXAN [Suspect]
     Indication: BREAST CANCER
     Dosage: 100 MG DAILY PO
     Route: 048
     Dates: start: 20021225, end: 20030209

REACTIONS (1)
  - WHITE BLOOD CELL COUNT DECREASED [None]
